FAERS Safety Report 13818999 (Version 1)
Quarter: 2017Q3

REPORT INFORMATION
  Report Type: Spontaneous
  Country: US (occurrence: US)
  Receive Date: 20170801
  Receipt Date: 20170801
  Transmission Date: 20171127
  Serious: Yes (Hospitalization)
  Sender: FDA-Public Use
  Company Number: US-BIO-PHARM, INC -2023990

PATIENT

DRUGS (1)
  1. MEMANTINE HYDROCHLORIDE ORAL SOLUTION [Suspect]
     Active Substance: MEMANTINE HYDROCHLORIDE

REACTIONS (1)
  - Myoclonus [Recovered/Resolved]
